FAERS Safety Report 6220756-5 (Version None)
Quarter: 2009Q2

REPORT INFORMATION
  Report Type: 
  Country: None (occurrence: None)
  Receive Date: 20090605
  Receipt Date: 20090601
  Transmission Date: 20091009
  Serious: Yes (Disabling)
  Sender: FDA-Public Use
  Company Number: AU-WYE-G03560909

PATIENT
  Sex: Female

DRUGS (1)
  1. EFFEXOR XR [Suspect]
     Dosage: 150MG AND 75MG

REACTIONS (4)
  - DRUG EFFECT DECREASED [None]
  - IMPAIRED WORK ABILITY [None]
  - PERSONALITY CHANGE [None]
  - PRODUCT QUALITY ISSUE [None]
